FAERS Safety Report 9926872 (Version 1)
Quarter: 2014Q1

REPORT INFORMATION
  Report Type: Spontaneous
  Country: US (occurrence: US)
  Receive Date: 20140226
  Receipt Date: 20140226
  Transmission Date: 20141002
  Serious: No
  Sender: FDA-Public Use
  Company Number: US-AMGEN-USASP2013081389

PATIENT
  Age: 61 Year
  Sex: Female
  Weight: 48.98 kg

DRUGS (1)
  1. ENBREL [Suspect]
     Indication: RHEUMATOID ARTHRITIS
     Dosage: 50 MG, QWK
     Route: 058
     Dates: end: 201309

REACTIONS (4)
  - Amnesia [Unknown]
  - Weight decreased [Unknown]
  - Anxiety [Unknown]
  - Confusional state [Unknown]
